FAERS Safety Report 16594302 (Version 1)
Quarter: 2019Q3

REPORT INFORMATION
  Report Type: Spontaneous
  Country: CA (occurrence: CA)
  Receive Date: 20190718
  Receipt Date: 20190718
  Transmission Date: 20191004
  Serious: Yes (Other)
  Sender: FDA-Public Use
  Company Number: CA-TEVA-2019-CA-1078277

PATIENT
  Age: 66 Year
  Sex: Female

DRUGS (21)
  1. OMALIZUMAB. [Suspect]
     Active Substance: OMALIZUMAB
     Route: 058
  2. DOXEPIN HYDROCHLORIDE. [Concomitant]
     Active Substance: DOXEPIN HYDROCHLORIDE
     Indication: PRODUCT USED FOR UNKNOWN INDICATION
     Dosage: 10 MILLIGRAM DAILY;
     Route: 065
  3. OMALIZUMAB. [Suspect]
     Active Substance: OMALIZUMAB
     Route: 058
  4. DESLORATADINE/PSEUDOEPHEDRINE SULFATE [Suspect]
     Active Substance: DESLORATADINE\PSEUDOEPHEDRINE SULFATE
     Indication: PRODUCT USED FOR UNKNOWN INDICATION
     Route: 065
  5. MONTELUKAST SODIUM. [Suspect]
     Active Substance: MONTELUKAST SODIUM
     Indication: PRODUCT USED FOR UNKNOWN INDICATION
     Dosage: 10 MILLIGRAM DAILY;
     Route: 065
  6. OMALIZUMAB. [Suspect]
     Active Substance: OMALIZUMAB
     Route: 058
  7. AERIUS (DESLORATADINE) [Suspect]
     Active Substance: DESLORATADINE
     Indication: URTICARIA
  8. OMALIZUMAB. [Suspect]
     Active Substance: OMALIZUMAB
     Route: 058
  9. OMALIZUMAB. [Suspect]
     Active Substance: OMALIZUMAB
     Route: 058
  10. OMALIZUMAB. [Suspect]
     Active Substance: OMALIZUMAB
     Route: 058
  11. OMALIZUMAB. [Suspect]
     Active Substance: OMALIZUMAB
     Route: 058
  12. OMALIZUMAB. [Suspect]
     Active Substance: OMALIZUMAB
     Route: 065
  13. DESLORATADINE/PSEUDOEPHEDRINE SULFATE [Suspect]
     Active Substance: DESLORATADINE\PSEUDOEPHEDRINE SULFATE
     Indication: URTICARIA
     Dosage: 4 DOSAGE FORMS DAILY;
     Route: 065
  14. DOXEPIN [Concomitant]
     Active Substance: DOXEPIN
     Indication: PRODUCT USED FOR UNKNOWN INDICATION
     Dosage: 10 MILLIGRAM DAILY;
  15. ZANTAC [Concomitant]
     Active Substance: RANITIDINE HYDROCHLORIDE
     Indication: PRODUCT USED FOR UNKNOWN INDICATION
     Dosage: 2 DOSAGE FORMS DAILY;
     Route: 065
  16. OMALIZUMAB. [Suspect]
     Active Substance: OMALIZUMAB
     Route: 058
  17. AERIUS (DESLORATADINE) [Suspect]
     Active Substance: DESLORATADINE
     Indication: PRODUCT USED FOR UNKNOWN INDICATION
     Dosage: 4 DOSAGE FORMS DAILY;
  18. OMALIZUMAB. [Suspect]
     Active Substance: OMALIZUMAB
     Indication: CHRONIC SPONTANEOUS URTICARIA
     Route: 058
  19. OMALIZUMAB. [Suspect]
     Active Substance: OMALIZUMAB
     Dosage: 450 MILLIGRAM DAILY;
     Route: 058
  20. OMALIZUMAB. [Suspect]
     Active Substance: OMALIZUMAB
     Route: 058
  21. OMALIZUMAB. [Suspect]
     Active Substance: OMALIZUMAB
     Route: 058

REACTIONS (18)
  - Fibromyalgia [Not Recovered/Not Resolved]
  - Hypophagia [Not Recovered/Not Resolved]
  - Dyspepsia [Not Recovered/Not Resolved]
  - Nervousness [Not Recovered/Not Resolved]
  - Pruritus [Not Recovered/Not Resolved]
  - Rash erythematous [Not Recovered/Not Resolved]
  - Feeling hot [Not Recovered/Not Resolved]
  - Pain in extremity [Not Recovered/Not Resolved]
  - Urticaria [Not Recovered/Not Resolved]
  - Hypotension [Not Recovered/Not Resolved]
  - Insomnia [Not Recovered/Not Resolved]
  - Drug ineffective [Not Recovered/Not Resolved]
  - Erythema [Not Recovered/Not Resolved]
  - Gastric ulcer [Not Recovered/Not Resolved]
  - Respiratory rate increased [Not Recovered/Not Resolved]
  - Abdominal discomfort [Not Recovered/Not Resolved]
  - Fatigue [Not Recovered/Not Resolved]
  - Gastrointestinal disorder [Not Recovered/Not Resolved]
